FAERS Safety Report 6704274-3 (Version None)
Quarter: 2010Q2

REPORT INFORMATION
  Report Type: 
  Country: None (occurrence: None)
  Receive Date: 20100430
  Receipt Date: 20100330
  Transmission Date: 20101027
  Serious: No
  Sender: FDA-Public Use
  Company Number: US-BAYER-201018507NA

PATIENT
  Age: 48 Year
  Sex: Male
  Weight: 88 kg

DRUGS (3)
  1. MAGNEVIST [Suspect]
     Indication: NUCLEAR MAGNETIC RESONANCE IMAGING
     Dosage: TOTAL DAILY DOSE: 18 ML  UNIT DOSE: 50 ML
     Route: 042
     Dates: start: 20100330, end: 20100330
  2. PEPCID [Concomitant]
  3. DARVOCET [Concomitant]

REACTIONS (2)
  - PRURITUS [None]
  - URTICARIA [None]
